FAERS Safety Report 20666876 (Version 2)
Quarter: 2022Q2

REPORT INFORMATION
  Report Type: Report from Study
  Country: US (occurrence: US)
  Receive Date: 20220403
  Receipt Date: 20220406
  Transmission Date: 20220721
  Serious: Yes (Hospitalization)
  Sender: FDA-Public Use
  Company Number: US-JNJFOC-20220360156

PATIENT
  Age: 18 Year
  Sex: Female
  Weight: 74.7 kg

DRUGS (7)
  1. INFLIXIMAB [Suspect]
     Active Substance: INFLIXIMAB
     Indication: Inflammatory bowel disease
     Route: 042
     Dates: start: 20141015, end: 20210603
  2. HUMIRA [Concomitant]
     Active Substance: ADALIMUMAB
     Dates: start: 20210616
  3. HUMIRA [Concomitant]
     Active Substance: ADALIMUMAB
     Dates: start: 20220311
  4. RIVAROXABAN [Concomitant]
     Active Substance: RIVAROXABAN
  5. PREDNISONE [Concomitant]
     Active Substance: PREDNISONE
     Dates: start: 20220322
  6. TRAZODONE [Concomitant]
     Active Substance: TRAZODONE HYDROCHLORIDE
  7. CITALOPRAM [Concomitant]
     Active Substance: CITALOPRAM HYDROBROMIDE

REACTIONS (1)
  - Anal fissure [Recovered/Resolved with Sequelae]

NARRATIVE: CASE EVENT DATE: 20220314
